FAERS Safety Report 13440438 (Version 1)
Quarter: 2017Q2

REPORT INFORMATION
  Report Type: Spontaneous
  Country: US (occurrence: US)
  Receive Date: 20170413
  Receipt Date: 20170413
  Transmission Date: 20170830
  Serious: Yes (Other)
  Sender: FDA-Public Use
  Company Number: US-ACCORD-050042

PATIENT
  Age: 19 Year
  Sex: Male

DRUGS (1)
  1. METHOTREXATE. [Suspect]
     Active Substance: METHOTREXATE
     Indication: T-CELL TYPE ACUTE LEUKAEMIA
     Dosage: ALSO RECEIVED HD MTX, WHICH WAS DISCONTINUED AFTER EVENTS.
     Route: 037

REACTIONS (5)
  - Headache [Recovered/Resolved]
  - Muscular weakness [Recovered/Resolved]
  - Monoparesis [Recovered/Resolved]
  - Confusional state [Recovered/Resolved]
  - Dysarthria [Recovered/Resolved]
